FAERS Safety Report 8871012 (Version 1)
Quarter: 2012Q4

REPORT INFORMATION
  Report Type: 
  Country: US (occurrence: US)
  Receive Date: 20121023
  Receipt Date: 20121023
  Transmission Date: 20130627
  Serious: No
  Sender: FDA-Public Use
  Company Number: US-AMGEN-USASP2012008692

PATIENT
  Age: 36 Year
  Sex: Female

DRUGS (3)
  1. ENBREL [Suspect]
     Indication: PSORIASIS
     Dosage: 50 mg, 2 times/wk
     Dates: start: 20101021, end: 201104
  2. BETA BLOCKING AGENTS [Concomitant]
  3. AZOR                               /00595201/ [Concomitant]

REACTIONS (2)
  - Sinus disorder [Unknown]
  - Hypersensitivity [Unknown]
